FAERS Safety Report 10960840 (Version 1)
Quarter: 2015Q1

REPORT INFORMATION
  Report Type: Spontaneous
  Country: US (occurrence: US)
  Receive Date: 20150327
  Receipt Date: 20150327
  Transmission Date: 20150721
  Serious: No
  Sender: FDA-Public Use
  Company Number: US-009507513-1503USA006670

PATIENT
  Age: 27 Year
  Sex: Female

DRUGS (2)
  1. TRUVADA [Concomitant]
     Active Substance: EMTRICITABINE\TENOFOVIR DISOPROXIL FUMARATE
     Dosage: UNK
  2. ISENTRESS [Suspect]
     Active Substance: RALTEGRAVIR POTASSIUM
     Indication: PROPHYLAXIS AGAINST HIV INFECTION
     Dosage: DOSE 400MG; FREQUENCY UNKNOWN
     Route: 048

REACTIONS (2)
  - Vomiting [Unknown]
  - Drug administration error [Unknown]

NARRATIVE: CASE EVENT DATE: 20150312
